FAERS Safety Report 5746239-4 (Version None)
Quarter: 2008Q2

REPORT INFORMATION
  Report Type: 
  Country: None (occurrence: None)
  Receive Date: 20080522
  Receipt Date: 20080519
  Transmission Date: 20081010
  Serious: Yes (Death, Other)
  Sender: FDA-Public Use
  Company Number: PHBS2008BR04576

PATIENT
  Age: 34 Year
  Sex: Female

DRUGS (3)
  1. TACROLIMUS [Suspect]
     Indication: SMALL INTESTINE TRANSPLANT
     Route: 042
  2. CORTICOSTEROIDS [Suspect]
     Indication: SMALL INTESTINE TRANSPLANT
     Route: 042
  3. BASILIXIMAB [Suspect]
     Indication: SMALL INTESTINE TRANSPLANT
     Route: 042
     Dates: start: 20040526

REACTIONS (5)
  - ACUTE MYOCARDIAL INFARCTION [None]
  - CARDIO-RESPIRATORY ARREST [None]
  - ERYTHEMA [None]
  - INTESTINE TRANSPLANT REJECTION [None]
  - TACHYCARDIA [None]
